FAERS Safety Report 10742268 (Version 1)
Quarter: 2015Q1

REPORT INFORMATION
  Report Type: Spontaneous
  Country: US (occurrence: None)
  Receive Date: 20150123
  Receipt Date: 20150123
  Transmission Date: 20150721
  Serious: Yes (Hospitalization)
  Sender: FDA-Public Use
  Company Number: None

PATIENT
  Age: 81 Year
  Sex: Female
  Weight: 61.24 kg

DRUGS (6)
  1. ESTRACE [Suspect]
     Active Substance: ESTRADIOL
     Indication: ATROPHIC VULVOVAGINITIS
     Dosage: 0.5 MG, 0.5 MG, ONCE WEEKLY, BY APPLICATOR VAGINAL ROUTE
     Route: 067
     Dates: end: 20150105
  2. CHONDROITIN [Concomitant]
     Active Substance: CHONDROITIN
  3. LOSARTAN [Concomitant]
     Active Substance: LOSARTAN
  4. METOPROLOL TART [Concomitant]
  5. GLUCOSAMINE [Concomitant]
     Active Substance: GLUCOSAMINE
  6. VITAMIN D3 [Concomitant]
     Active Substance: CHOLECALCIFEROL

REACTIONS (5)
  - Pruritus [None]
  - Erythema [None]
  - Eye swelling [None]
  - Rash [None]
  - Urticaria [None]

NARRATIVE: CASE EVENT DATE: 20150105
